FAERS Safety Report 11248413 (Version 2)
Quarter: 2015Q3

REPORT INFORMATION
  Report Type: Spontaneous
  Country: US (occurrence: US)
  Receive Date: 20150708
  Receipt Date: 20150831
  Transmission Date: 20151125
  Serious: Yes (Hospitalization)
  Sender: FDA-Public Use
  Company Number: US-ELI_LILLY_AND_COMPANY-US200907001813

PATIENT
  Age: 34 Year
  Sex: Female

DRUGS (5)
  1. CYMBALTA [Suspect]
     Active Substance: DULOXETINE HYDROCHLORIDE
     Dosage: 1800 MG, UNK
     Dates: start: 20090525, end: 20090525
  2. OXYCODONE [Concomitant]
     Active Substance: OXYCODONE
  3. FENTANYL. [Concomitant]
     Active Substance: FENTANYL
  4. PROZAC [Suspect]
     Active Substance: FLUOXETINE HYDROCHLORIDE
  5. CYMBALTA [Suspect]
     Active Substance: DULOXETINE HYDROCHLORIDE
     Indication: MAJOR DEPRESSION
     Dosage: 60 MG, DAILY (1/D)
     Dates: start: 2009

REACTIONS (2)
  - Intentional overdose [Recovered/Resolved]
  - Suicide attempt [Recovered/Resolved]

NARRATIVE: CASE EVENT DATE: 20090525
